FAERS Safety Report 4586401-X (Version None)
Quarter: 2005Q1

REPORT INFORMATION
  Report Type: 
  Country: None (occurrence: None)
  Receive Date: 20050125
  Receipt Date: 20041007
  Transmission Date: 20050727
  Serious: No
  Sender: FDA-Public Use
  Company Number: USA040876943

PATIENT
  Age: 74 Year
  Sex: Female

DRUGS (4)
  1. FORTEO [Suspect]
     Indication: BONE MARROW DISORDER
     Dates: start: 20040314, end: 20040411
  2. EVISTA [Suspect]
     Dates: start: 20040305, end: 20040308
  3. PROCRIT (ERYTHROPOIETIN) [Concomitant]
  4. VITAMIN D [Concomitant]

REACTIONS (2)
  - BLOOD PARATHYROID HORMONE INCREASED [None]
  - BONE PAIN [None]
